FAERS Safety Report 20610098 (Version 1)
Quarter: 2022Q1

REPORT INFORMATION
  Report Type: Spontaneous
  Country: AU (occurrence: AU)
  Receive Date: 20220318
  Receipt Date: 20220318
  Transmission Date: 20220424
  Serious: Yes (Death)
  Sender: FDA-Public Use
  Company Number: AU-009507513-2203AUS004904

PATIENT
  Age: 31 Year
  Sex: Female

DRUGS (8)
  1. IVERMECTIN [Suspect]
     Active Substance: IVERMECTIN
  2. ASCORBIC ACID [Suspect]
     Active Substance: ASCORBIC ACID
  3. BARICITINIB [Suspect]
     Active Substance: BARICITINIB
  4. DEXAMETHASONE [Suspect]
     Active Substance: DEXAMETHASONE
  5. FENTANYL [Suspect]
     Active Substance: FENTANYL
  6. PIPERACILLIN AND TAZOBACTAM [Suspect]
     Active Substance: PIPERACILLIN SODIUM\TAZOBACTAM SODIUM
  7. PROPOFOL [Suspect]
     Active Substance: PROPOFOL
  8. SUBOXONE [Suspect]
     Active Substance: BUPRENORPHINE HYDROCHLORIDE\NALOXONE HYDROCHLORIDE

REACTIONS (2)
  - Arrhythmia [Fatal]
  - Cardiac arrest [Fatal]

NARRATIVE: CASE EVENT DATE: 20210914
